FAERS Safety Report 11993436 (Version 1)
Quarter: 2016Q1

REPORT INFORMATION
  Report Type: Spontaneous
  Country: TR (occurrence: TR)
  Receive Date: 20160203
  Receipt Date: 20160203
  Transmission Date: 20160526
  Serious: Yes (Life-Threatening)
  Sender: FDA-Public Use
  Company Number: TR-009507513-1602TUR000965

PATIENT
  Age: 16 Year
  Sex: Female

DRUGS (1)
  1. GRAZAX [Suspect]
     Active Substance: PHLEUM PRATENSE POLLEN
     Indication: RHINITIS ALLERGIC
     Dosage: DAILY DOSAGE, 1 QD
     Route: 065
     Dates: start: 20151123, end: 20151223

REACTIONS (6)
  - Oral pruritus [Recovered/Resolved]
  - Investigation abnormal [Recovered/Resolved]
  - Pruritus [Recovered/Resolved]
  - Dyspnoea [Recovered/Resolved]
  - Sensation of foreign body [Recovered/Resolved]
  - Urticaria [Recovered/Resolved]

NARRATIVE: CASE EVENT DATE: 20151123
